FAERS Safety Report 9666209 (Version 1)
Quarter: 2013Q4

REPORT INFORMATION
  Report Type: Spontaneous
  Country: US (occurrence: None)
  Receive Date: 20131101
  Receipt Date: 20131101
  Transmission Date: 20140711
  Serious: No
  Sender: FDA-Public Use
  Company Number: None

PATIENT
  Age: 59 Year
  Sex: Female

DRUGS (1)
  1. HUMULIN 70/30 [Suspect]
     Indication: DIABETES MELLITUS
     Dosage: INJECT 20 UNITS UNDER THE SKIN BEFORE BREAKFAST AND 10 UNITS BEFORE DINNER

REACTIONS (1)
  - Blood glucose decreased [None]
